FAERS Safety Report 25705705 (Version 1)
Quarter: 2025Q3

REPORT INFORMATION
  Report Type: Spontaneous
  Country: US (occurrence: None)
  Receive Date: 20250819
  Receipt Date: 20250819
  Transmission Date: 20251021
  Serious: Yes (Hospitalization)
  Sender: FDA-CTU
  Company Number: None

PATIENT
  Age: 32 Year
  Sex: Female

DRUGS (2)
  1. IRON DEXTRAN [Suspect]
     Active Substance: IRON DEXTRAN
  2. IRON DEXTRAN [Concomitant]
     Active Substance: IRON DEXTRAN
     Dates: start: 20250805, end: 20250805

REACTIONS (7)
  - Maternal exposure during pregnancy [None]
  - Foetal exposure during pregnancy [None]
  - Anxiety [None]
  - Infusion related reaction [None]
  - Dyspnoea [None]
  - Wheezing [None]
  - Foetal heart rate deceleration abnormality [None]

NARRATIVE: CASE EVENT DATE: 20250805
